FAERS Safety Report 24098084 (Version 1)
Quarter: 2024Q3

REPORT INFORMATION
  Report Type: Report from Study
  Country: JP (occurrence: JP)
  Receive Date: 20240716
  Receipt Date: 20240716
  Transmission Date: 20241016
  Serious: Yes (Congenital Anomaly)
  Sender: BAYER
  Company Number: JP-BAYER-2024A099297

PATIENT

DRUGS (2)
  1. CIPROFLOXACIN [Suspect]
     Active Substance: CIPROFLOXACIN
     Route: 064
  2. ACETAMINOPHEN [Suspect]
     Active Substance: ACETAMINOPHEN
     Route: 064

REACTIONS (2)
  - Congenital coronary artery malformation [None]
  - Foetal exposure during pregnancy [None]
